FAERS Safety Report 16542274 (Version 2)
Quarter: 2019Q3

REPORT INFORMATION
  Report Type: Spontaneous
  Country: RU (occurrence: RU)
  Receive Date: 20190708
  Receipt Date: 20190719
  Transmission Date: 20191004
  Serious: Yes (Death)
  Sender: FDA-Public Use
  Company Number: PHHY2019RU156904

PATIENT
  Sex: Male
  Weight: .96 kg

DRUGS (1)
  1. CEFTRIAXONE. [Suspect]
     Active Substance: CEFTRIAXONE
     Indication: FOETAL EXPOSURE DURING PREGNANCY
     Dosage: MATERNAL DOSE: 1 G, QD
     Route: 064

REACTIONS (4)
  - Foetal distress syndrome [Fatal]
  - Abdominal tenderness [Unknown]
  - Foetal exposure during pregnancy [Unknown]
  - Foetal malposition [Unknown]

NARRATIVE: CASE EVENT DATE: 20170630
